FAERS Safety Report 25947387 (Version 1)
Quarter: 2025Q4

REPORT INFORMATION
  Report Type: Spontaneous
  Country: US (occurrence: US)
  Receive Date: 20251022
  Receipt Date: 20251022
  Transmission Date: 20260117
  Serious: No
  Sender: SUNOVION
  Company Number: US-SMPA-2025SPA012717

PATIENT
  Age: 71 Year
  Sex: Male

DRUGS (17)
  1. ORGOVYX [Suspect]
     Active Substance: RELUGOLIX
     Indication: Product used for unknown indication
     Dosage: 360 MG
     Route: 048
  2. ORGOVYX [Suspect]
     Active Substance: RELUGOLIX
     Dosage: 120 MG
     Route: 048
  3. ACYCLOVIR [Concomitant]
     Active Substance: ACYCLOVIR
  4. BACTRIM DS [Concomitant]
     Active Substance: SULFAMETHOXAZOLE\TRIMETHOPRIM
  5. BIKTARVY [Concomitant]
     Active Substance: BICTEGRAVIR SODIUM\EMTRICITABINE\TENOFOVIR ALAFENAMIDE FUMARATE
  6. CYMBALTA [Concomitant]
     Active Substance: DULOXETINE HYDROCHLORIDE
  7. DARZALEX [Concomitant]
     Active Substance: DARATUMUMAB
  8. GABAPENTIN [Concomitant]
     Active Substance: GABAPENTIN
  9. GAMMAGARD [Concomitant]
     Active Substance: HUMAN IMMUNOGLOBULIN G
  10. KLONOPIN [Concomitant]
     Active Substance: CLONAZEPAM
  11. METOPROLOL SUCCINATE [Concomitant]
     Active Substance: METOPROLOL SUCCINATE
  12. VITAMINS [Concomitant]
     Active Substance: VITAMINS
  13. PREDNISONE [Concomitant]
     Active Substance: PREDNISONE
  14. ROSUVASTATIN [Concomitant]
     Active Substance: ROSUVASTATIN
  15. VITAMIN B12 [Concomitant]
     Active Substance: CYANOCOBALAMIN
  16. XARELTO [Concomitant]
     Active Substance: RIVAROXABAN
  17. ZYTIGA [Concomitant]
     Active Substance: ABIRATERONE ACETATE

REACTIONS (2)
  - Respiratory tract infection [Unknown]
  - Platelet count decreased [Unknown]
